FAERS Safety Report 5022201-4 (Version None)
Quarter: 2006Q2

REPORT INFORMATION
  Report Type: 
  Country: None (occurrence: None)
  Receive Date: 20060609
  Receipt Date: 20051201
  Transmission Date: 20061013
  Serious: Yes (Hospitalization)
  Sender: FDA-Public Use
  Company Number: BE-BRISTOL-MYERS SQUIBB COMPANY-13200613

PATIENT
  Age: 41 Year
  Sex: Female
  Weight: 109 kg

DRUGS (5)
  1. ARIPIPRAZOLE [Suspect]
     Indication: SCHIZOPHRENIA
     Route: 048
     Dates: end: 20051006
  2. FLUPENTIXOL [Concomitant]
     Dosage: INCREASED TO 4 MG/DAY AFTER ARIPIRAZOLE WAS STOPPED
     Route: 048
  3. PAROXETINE HCL [Concomitant]
     Route: 048
  4. PANTOPRAZOLE [Concomitant]
     Route: 048
  5. CLOTIAPINE [Concomitant]
     Route: 048

REACTIONS (3)
  - DELIRIUM [None]
  - PSYCHOTIC DISORDER [None]
  - SELF MUTILATION [None]
